FAERS Safety Report 9731913 (Version 2)
Quarter: 2013Q4

REPORT INFORMATION
  Report Type: Report from Study
  Country: MX (occurrence: MX)
  Receive Date: 20131205
  Receipt Date: 20131205
  Transmission Date: 20140711
  Serious: Yes (Other)
  Sender: FDA-Public Use
  Company Number: PHHY2011MX04202

PATIENT
  Age: 71 Year
  Sex: Female

DRUGS (9)
  1. EXFORGE HCT [Suspect]
     Indication: HYPERTENSION
     Dosage: 2 DF, (160 MG VALS, 5 MG AMLO, 12.5 MG HCTZ)
     Route: 048
     Dates: start: 201012
  2. EXFORGE HCT [Suspect]
     Dosage: 1 DF, DAILY (VALS 320 MG , AMLO 10 MG, HYDR 25 MG)
     Route: 048
     Dates: start: 20130113, end: 20130329
  3. GALVUS MET [Suspect]
     Indication: DIABETES MELLITUS
     Dosage: 2 DF, DAILY
  4. CORPOTASIN [Concomitant]
     Dosage: UNK UKN, UNK
  5. DOLO-NEUROBION [Concomitant]
     Dosage: UNK UKN, UNK
  6. METFORMIN [Concomitant]
     Dosage: UNK UKN, UNK
     Dates: start: 201012
  7. GLIBENCLAMIDE [Concomitant]
     Dosage: UNK UKN, UNK
     Dates: start: 201012
  8. PHENYTOIN [Concomitant]
     Indication: NERVOUS SYSTEM DISORDER
  9. ACETAZOLAMIDE [Concomitant]
     Dosage: 0.5 DF, EACH 24 HOURS

REACTIONS (6)
  - Vascular rupture [Not Recovered/Not Resolved]
  - Diabetes mellitus [Unknown]
  - Hypertension [Not Recovered/Not Resolved]
  - Nervous system disorder [Not Recovered/Not Resolved]
  - Hypotension [Not Recovered/Not Resolved]
  - Drug ineffective [Not Recovered/Not Resolved]
